FAERS Safety Report 5277749-4 (Version None)
Quarter: 2007Q1

REPORT INFORMATION
  Report Type: 
  Country: None (occurrence: None)
  Receive Date: 20070321
  Receipt Date: 20070307
  Transmission Date: 20070707
  Serious: Yes (Other)
  Sender: FDA-Public Use
  Company Number: 237466

PATIENT
  Age: 15 Year
  Sex: Male
  Weight: 49 kg

DRUGS (9)
  1. NUTROPIN AQ [Suspect]
     Indication: OBSTRUCTIVE UROPATHY
     Dosage: 4.9 MG, 7/WEEK, SUBCUTANEOUS
     Route: 058
     Dates: start: 20030415, end: 20070225
  2. CELLCEPT [Concomitant]
  3. PROGRAF [Concomitant]
  4. PREDNISONE (PREDNSONE) [Concomitant]
  5. CALCIUM CARBONATE (CALCIUM CARBONATE) [Concomitant]
  6. HYDROCHLOROTHIAZIDE [Concomitant]
  7. NIFEREX (POLYSACCHARIDE-IRON COMPLEX) [Concomitant]
  8. NORVASC [Concomitant]
  9. SODIUM BICARBONATE IN PLASTIC CONTAINER [Concomitant]

REACTIONS (5)
  - BLOOD CREATINE PHOSPHOKINASE INCREASED [None]
  - BLOOD GLUCOSE INCREASED [None]
  - BLOOD UREA INCREASED [None]
  - CHEST PAIN [None]
  - HAEMOGLOBIN DECREASED [None]
